FAERS Safety Report 18420472 (Version 1)
Quarter: 2020Q4

REPORT INFORMATION
  Report Type: Spontaneous
  Country: GB (occurrence: GB)
  Receive Date: 20201023
  Receipt Date: 20201023
  Transmission Date: 20210114
  Serious: Yes (Other)
  Sender: FDA-Public Use
  Company Number: GB-TEVA-2020-GB-1840916

PATIENT
  Age: 39 Year
  Sex: Male
  Weight: 68 kg

DRUGS (3)
  1. SODIUM CHLORIDE SOLUTION 0.9% [Concomitant]
     Active Substance: SODIUM CHLORIDE
     Dosage: 0.9 PERCENT
     Route: 042
     Dates: start: 20200919
  2. CO-AMOXICLAV [Suspect]
     Active Substance: AMOXICILLIN\CLAVULANATE POTASSIUM
     Indication: LOWER RESPIRATORY TRACT INFECTION
     Dosage: 1.2 GRAM
     Route: 042
     Dates: start: 20200919, end: 20200919
  3. PARACETAMOL [Concomitant]
     Active Substance: ACETAMINOPHEN

REACTIONS (2)
  - Paraesthesia oral [Recovering/Resolving]
  - Lip swelling [Recovering/Resolving]

NARRATIVE: CASE EVENT DATE: 20200919
